FAERS Safety Report 19948048 (Version 2)
Quarter: 2021Q4

REPORT INFORMATION
  Report Type: Spontaneous
  Country: US (occurrence: US)
  Receive Date: 20211012
  Receipt Date: 20211022
  Transmission Date: 20220303
  Serious: No
  Sender: FDA-Public Use
  Company Number: US-TAKEDA-2021TUS061354

PATIENT

DRUGS (3)
  1. MOTEGRITY [Suspect]
     Active Substance: PRUCALOPRIDE SUCCINATE
     Indication: Constipation
     Route: 065
  2. AMITIZA [Suspect]
     Active Substance: LUBIPROSTONE
     Indication: Constipation
     Route: 065
  3. LINZESS [Suspect]
     Active Substance: LINACLOTIDE
     Indication: Constipation
     Route: 065

REACTIONS (2)
  - Hyperhidrosis [Unknown]
  - Headache [Unknown]
